FAERS Safety Report 17082299 (Version 1)
Quarter: 2019Q4

REPORT INFORMATION
  Report Type: Spontaneous
  Country: VE (occurrence: VE)
  Receive Date: 20191127
  Receipt Date: 20191127
  Transmission Date: 20200122
  Serious: Yes (Other)
  Sender: FDA-Public Use
  Company Number: VE-PFIZER INC-2019509325

PATIENT
  Sex: Female

DRUGS (1)
  1. DEPO-PROVERA [Suspect]
     Active Substance: MEDROXYPROGESTERONE ACETATE
     Indication: ENDOMETRIOSIS
     Dosage: 1 DF, MONTHLY (ONE DOSE MONTHLY)

REACTIONS (15)
  - Vomiting [Unknown]
  - Weight increased [Recovering/Resolving]
  - Fear [Unknown]
  - Drug intolerance [Unknown]
  - Peripheral swelling [Unknown]
  - Hypotension [Unknown]
  - Syncope [Unknown]
  - Alopecia [Recovering/Resolving]
  - Erythema [Unknown]
  - Panic attack [Unknown]
  - Mood swings [Unknown]
  - Migraine [Unknown]
  - Hypersensitivity [Unknown]
  - Off label use [Unknown]
  - Depression [Unknown]
